FAERS Safety Report 5848182-9 (Version None)
Quarter: 2008Q3

REPORT INFORMATION
  Report Type: 
  Country: None (occurrence: None)
  Receive Date: 20080818
  Receipt Date: 20080813
  Transmission Date: 20090109
  Serious: Yes (Congenital Anomaly)
  Sender: FDA-Public Use
  Company Number: A0743110A

PATIENT
  Sex: Male

DRUGS (1)
  1. PAXIL [Suspect]
     Indication: DRUG USE FOR UNKNOWN INDICATION

REACTIONS (4)
  - DRUG EXPOSURE DURING PREGNANCY [None]
  - FALLOT'S TETRALOGY [None]
  - LUNG DISORDER [None]
  - VENTRICULAR SEPTAL DEFECT [None]
